FAERS Safety Report 12780343 (Version 4)
Quarter: 2020Q1

REPORT INFORMATION
  Report Type: Spontaneous
  Country: NO (occurrence: NO)
  Receive Date: 20160926
  Receipt Date: 20200218
  Transmission Date: 20200409
  Serious: Yes (Hospitalization, Other)
  Sender: FDA-Public Use
  Company Number: NO-SA-2016SA173101

PATIENT
  Age: 29 Year
  Sex: Female

DRUGS (11)
  1. CETIRIZINE [Concomitant]
     Active Substance: CETIRIZINE HYDROCHLORIDE
     Indication: PREMEDICATION
     Dosage: 10 MG,QD
     Route: 048
     Dates: start: 20160801
  2. SOLU-MEDROL [Concomitant]
     Active Substance: METHYLPREDNISOLONE SODIUM SUCCINATE
     Indication: PREMEDICATION
     Dosage: 500 MG,QD
     Route: 042
     Dates: start: 20160801
  3. SOMAC [Concomitant]
     Active Substance: PANTOPRAZOLE SODIUM
     Indication: PREMEDICATION
     Dosage: 40 MG,QD
     Route: 048
     Dates: start: 20160801
  4. DUORESP SPIROMAX [Concomitant]
     Active Substance: BUDESONIDE\FORMOTEROL
     Indication: ASTHMA
     Dosage: UNK
     Route: 065
  5. LEMTRADA [Suspect]
     Active Substance: ALEMTUZUMAB
     Indication: RELAPSING-REMITTING MULTIPLE SCLEROSIS
     Dosage: 12 MG,QD
     Route: 041
     Dates: start: 20160801, end: 20160802
  6. COPAXONE [Suspect]
     Active Substance: GLATIRAMER ACETATE
     Dosage: UNK
     Route: 065
     Dates: start: 2017
  7. TECFIDERA [Suspect]
     Active Substance: DIMETHYL FUMARATE
     Dosage: UNK
     Route: 065
     Dates: end: 20170127
  8. PARACETAMOL [Concomitant]
     Active Substance: ACETAMINOPHEN
     Indication: PREMEDICATION
     Dosage: 1 G,QD
     Route: 048
     Dates: start: 20160801
  9. SOLU-MEDROL [Concomitant]
     Active Substance: METHYLPREDNISOLONE SODIUM SUCCINATE
     Dosage: 1 G,QD
     Route: 042
     Dates: start: 20160801
  10. INTERFERON BETA NOS [Concomitant]
     Active Substance: INTERFERON BETA
     Dosage: UNK
     Route: 065
     Dates: start: 20160606, end: 201607
  11. ZOVIRAX [Concomitant]
     Active Substance: ACYCLOVIR
     Indication: PREMEDICATION
     Dosage: 200 MG,BID
     Route: 048
     Dates: start: 20160801

REACTIONS (18)
  - Monoplegia [Unknown]
  - Hyperthyroidism [Unknown]
  - Haemoptysis [Recovered/Resolved]
  - Multiple sclerosis relapse [Unknown]
  - Vibration test abnormal [Unknown]
  - Extensor plantar response [Unknown]
  - Hypoaesthesia [Unknown]
  - Pulmonary alveolar haemorrhage [Recovered/Resolved]
  - Drug intolerance [Unknown]
  - Chest pain [Recovered/Resolved]
  - Chest discomfort [Recovered/Resolved]
  - Lymphopenia [Unknown]
  - Multiple sclerosis [Unknown]
  - Muscular weakness [Recovered/Resolved]
  - Dyspnoea [Recovered/Resolved]
  - Cough [Recovered/Resolved]
  - Hypokinesia [Unknown]
  - Gait disturbance [Unknown]

NARRATIVE: CASE EVENT DATE: 20160802
